FAERS Safety Report 20867511 (Version 1)
Quarter: 2022Q2

REPORT INFORMATION
  Report Type: Report from Study
  Country: IE (occurrence: IE)
  Receive Date: 20220524
  Receipt Date: 20220524
  Transmission Date: 20220720
  Serious: Yes (Other)
  Sender: FDA-Public Use
  Company Number: IE-ABBVIE-22K-229-4407887-00

PATIENT
  Age: 58 Year
  Sex: Female
  Weight: 84.7 kg

DRUGS (10)
  1. UPADACITINIB [Suspect]
     Active Substance: UPADACITINIB
     Indication: Rheumatoid arthritis
     Route: 048
     Dates: start: 20220323, end: 2022
  2. METHOTREXATE [Concomitant]
     Active Substance: METHOTREXATE
     Indication: Product used for unknown indication
     Route: 048
     Dates: start: 202101, end: 20220324
  3. DYDROGESTERONE\ESTRADIOL [Concomitant]
     Active Substance: DYDROGESTERONE\ESTRADIOL
     Indication: Prophylaxis
     Dosage: 2/10 MG
     Route: 048
     Dates: start: 2018
  4. CANDESARTAN [Concomitant]
     Active Substance: CANDESARTAN
     Indication: Hypertension
     Route: 048
     Dates: start: 201801
  5. ROSUVASTATIN [Concomitant]
     Active Substance: ROSUVASTATIN
     Indication: Hypercholesterolaemia
     Route: 048
     Dates: start: 2018
  6. SERTRALINE [Concomitant]
     Active Substance: SERTRALINE HYDROCHLORIDE
     Indication: Depression
     Route: 048
     Dates: start: 2019
  7. ASPIRIN [Concomitant]
     Active Substance: ASPIRIN
     Indication: Coronary arterial stent insertion
     Route: 048
     Dates: start: 2018
  8. LEVOTHYROXINE [Concomitant]
     Active Substance: LEVOTHYROXINE
     Indication: Hyperthyroidism
     Route: 048
     Dates: start: 2018
  9. NAPROXEN [Concomitant]
     Active Substance: NAPROXEN
     Indication: Prophylaxis
     Dosage: AS NEEDED
     Route: 048
     Dates: start: 2021
  10. IXPRIM [Concomitant]
     Active Substance: ACETAMINOPHEN\TRAMADOL HYDROCHLORIDE
     Indication: Prophylaxis
     Dosage: 37.5/325?AS NEEDED
     Route: 048
     Dates: start: 2020

REACTIONS (2)
  - Dizziness [Recovered/Resolved]
  - Vertigo [Recovered/Resolved]

NARRATIVE: CASE EVENT DATE: 20220430
